FAERS Safety Report 6079013-2 (Version None)
Quarter: 2009Q1

REPORT INFORMATION
  Report Type: 
  Country: None (occurrence: None)
  Receive Date: 20090216
  Receipt Date: 20090204
  Transmission Date: 20090719
  Serious: Yes (Hospitalization, Other)
  Sender: FDA-Public Use
  Company Number: US-ROCHE-430219

PATIENT
  Sex: Male
  Weight: 68 kg

DRUGS (1)
  1. ACCUTANE [Suspect]
     Indication: ACNE
     Route: 048
     Dates: start: 19890901, end: 19900901

REACTIONS (13)
  - AUTOIMMUNE DISORDER [None]
  - COLITIS [None]
  - COLITIS ULCERATIVE [None]
  - HAEMATOCHEZIA [None]
  - HAEMATOCRIT DECREASED [None]
  - HAEMOGLOBIN DECREASED [None]
  - HEADACHE [None]
  - HYPOGLYCAEMIA [None]
  - INFLAMMATORY BOWEL DISEASE [None]
  - PROCTOCOLITIS [None]
  - RHEUMATOID ARTHRITIS [None]
  - TYPE 1 DIABETES MELLITUS [None]
  - UNEVALUABLE EVENT [None]
